FAERS Safety Report 5095457-X (Version None)
Quarter: 2006Q3

REPORT INFORMATION
  Report Type: 
  Country: None (occurrence: None)
  Receive Date: 20060901
  Receipt Date: 20060811
  Transmission Date: 20061208
  Serious: Yes (Death)
  Sender: FDA-Public Use
  Company Number: AU-NOVOPROD-256161

PATIENT
  Age: 65 Year
  Sex: Male

DRUGS (3)
  1. NOVOSEVEN [Suspect]
     Indication: POST PROCEDURAL HAEMORRHAGE
  2. CLOPIDOGREL [Concomitant]
     Dosage: 6 TIMES USUAL DOSE.
  3. ASPIRIN                            /00002701/ [Concomitant]
     Dosage: 6 TIMES USUAL DOSE

REACTIONS (1)
  - PULMONARY EMBOLISM [None]
